FAERS Safety Report 19660535 (Version 1)
Quarter: 2021Q3

REPORT INFORMATION
  Report Type: Spontaneous
  Country: US (occurrence: US)
  Receive Date: 20210804
  Receipt Date: 20210804
  Transmission Date: 20211014
  Serious: Yes (Death)
  Sender: FDA-Public Use
  Company Number: None

PATIENT
  Age: 75 Year
  Sex: Female

DRUGS (1)
  1. ESBRIET [Suspect]
     Active Substance: PIRFENIDONE
     Indication: INTERSTITIAL LUNG DISEASE
     Route: 048
     Dates: start: 20161020, end: 20210708

REACTIONS (9)
  - Fibrin D dimer increased [None]
  - Nausea [None]
  - Unresponsive to stimuli [None]
  - Peripheral swelling [None]
  - Abdominal pain [None]
  - Painful respiration [None]
  - Pneumonia aspiration [None]
  - Atrial fibrillation [None]
  - Vomiting [None]

NARRATIVE: CASE EVENT DATE: 20210710
